FAERS Safety Report 14475558 (Version 2)
Quarter: 2018Q3

REPORT INFORMATION
  Report Type: Spontaneous
  Country: US (occurrence: US)
  Receive Date: 20180201
  Receipt Date: 20180717
  Transmission Date: 20181010
  Serious: Yes (Hospitalization, Other)
  Sender: FDA-Public Use
  Company Number: US-DSJP-DSU-2017-141628

PATIENT

DRUGS (1)
  1. BENICAR [Suspect]
     Active Substance: OLMESARTAN MEDOXOMIL
     Indication: PRODUCT USED FOR UNKNOWN INDICATION
     Dosage: 40 MG, QD
     Dates: start: 20030301

REACTIONS (5)
  - Gastrooesophageal reflux disease [Unknown]
  - Cholecystitis chronic [Unknown]
  - Sprue-like enteropathy [Recovered/Resolved]
  - Large intestinal polypectomy [Unknown]
  - Diverticulum [Unknown]

NARRATIVE: CASE EVENT DATE: 20031113
